FAERS Safety Report 14454301 (Version 1)
Quarter: 2018Q1

REPORT INFORMATION
  Report Type: Spontaneous
  Country: GB (occurrence: GB)
  Receive Date: 20180129
  Receipt Date: 20180129
  Transmission Date: 20180509
  Serious: Yes (Other)
  Sender: FDA-Public Use
  Company Number: GB-BEH-2017086354

PATIENT
  Age: 35 Year

DRUGS (1)
  1. HAEMATE P [Suspect]
     Active Substance: ANTIHEMOPHILIC FACTOR HUMAN
     Indication: VON WILLEBRAND^S DISEASE
     Dosage: 2000 IU, UNK
     Route: 065

REACTIONS (3)
  - Dizziness [Recovered/Resolved]
  - Nausea [Recovered/Resolved]
  - Syncope [Recovered/Resolved]
